FAERS Safety Report 4998088-2 (Version None)
Quarter: 2006Q2

REPORT INFORMATION
  Report Type: 
  Country: None (occurrence: None)
  Receive Date: 20060508
  Receipt Date: 20060424
  Transmission Date: 20061013
  Serious: Yes (Hospitalization)
  Sender: FDA-Public Use
  Company Number: AMAN20060002

PATIENT
  Age: 84 Year
  Sex: Male
  Weight: 72.5755 kg

DRUGS (6)
  1. AMANTADINE ENDO [Suspect]
     Indication: PARKINSON'S DISEASE
     Dosage: 100 MG BID PO
     Route: 048
     Dates: end: 20060301
  2. PROPRANOLOL [Suspect]
     Indication: HYPERTENSION
  3. SINEMET [Concomitant]
  4. ASPIRIN [Concomitant]
  5. AMBIEN [Suspect]
     Dosage: 5 MG PO
     Route: 048
     Dates: start: 20060101
  6. ATIVAN [Suspect]
     Dates: start: 20060101

REACTIONS (6)
  - CEREBROVASCULAR ACCIDENT [None]
  - CONVULSION [None]
  - DYSPHAGIA [None]
  - HALLUCINATION [None]
  - SOMNOLENCE [None]
  - TREATMENT NONCOMPLIANCE [None]
